FAERS Safety Report 10661156 (Version 1)
Quarter: 2014Q4

REPORT INFORMATION
  Report Type: Spontaneous
  Country: SE (occurrence: SE)
  Receive Date: 20141218
  Receipt Date: 20141218
  Transmission Date: 20150529
  Serious: Yes (Hospitalization)
  Sender: FDA-Public Use
  Company Number: SE-ELI_LILLY_AND_COMPANY-SE201412004286

PATIENT
  Age: 36 Year
  Sex: Male

DRUGS (5)
  1. STESOLID [Concomitant]
     Active Substance: DIAZEPAM
  2. NALTREXONE [Concomitant]
     Active Substance: NALTREXONE
  3. ZYPADHERA [Suspect]
     Active Substance: OLANZAPINE PAMOATE
     Indication: SCHIZOPHRENIA
     Dosage: 405 MG, 2/M
     Route: 030
     Dates: start: 20130927, end: 20140507
  4. ERGENYL [Concomitant]
     Active Substance: VALPROIC ACID
  5. METFORMIN [Concomitant]
     Active Substance: METFORMIN HYDROCHLORIDE

REACTIONS (2)
  - Prescribed overdose [Recovered/Resolved]
  - Subcutaneous abscess [Recovered/Resolved]

NARRATIVE: CASE EVENT DATE: 20130927
